FAERS Safety Report 9001258 (Version 1)
Quarter: 2013Q1

REPORT INFORMATION
  Report Type: Spontaneous
  Country: CN (occurrence: CN)
  Receive Date: 20130107
  Receipt Date: 20130107
  Transmission Date: 20140127
  Serious: Yes (Other)
  Sender: FDA-Public Use
  Company Number: CN-BAYER-2013-001695

PATIENT
  Age: 72 Year
  Sex: Female
  Weight: 52 kg

DRUGS (2)
  1. NIMOTOP [Suspect]
     Indication: HYPERTENSION
     Dosage: 30 MG, BID
     Route: 048
     Dates: start: 20100517, end: 20100521
  2. SHUXUENING INJECTION [Concomitant]
     Dosage: UNK
     Dates: start: 20100507

REACTIONS (1)
  - Oedema peripheral [Recovering/Resolving]
